FAERS Safety Report 7489894-3 (Version None)
Quarter: 2011Q2

REPORT INFORMATION
  Report Type: 
  Country: None (occurrence: None)
  Receive Date: 20110512
  Receipt Date: 20110505
  Transmission Date: 20111010
  Serious: Yes (Other)
  Sender: FDA-Public Use
  Company Number: GB-ACCORD-008806

PATIENT
  Age: 63 Year
  Sex: Male

DRUGS (2)
  1. ASASANTIN (ASASANTIN) [Concomitant]
  2. SIMVASTATIN [Suspect]
     Indication: PROPHYLAXIS
     Dosage: 40.00MG-1.00  / ORAL TIMES PER 1.00 DAYS
     Route: 048

REACTIONS (1)
  - TENDON RUPTURE [None]
